FAERS Safety Report 4673722-5 (Version None)
Quarter: 2005Q2

REPORT INFORMATION
  Report Type: 
  Country: None (occurrence: None)
  Receive Date: 20050523
  Receipt Date: 20050510
  Transmission Date: 20051028
  Serious: Yes (Hospitalization, Other)
  Sender: FDA-Public Use
  Company Number: 2002059583

PATIENT
  Age: 19 Year
  Sex: Female

DRUGS (1)
  1. GEODON [Suspect]
     Indication: SCHIZOPHRENIA, PARANOID TYPE
     Dosage: 160 MG (80 MG, 2 IN 1 D)

REACTIONS (14)
  - AKATHISIA [None]
  - ANXIETY [None]
  - BLUNTED AFFECT [None]
  - BUNDLE BRANCH BLOCK RIGHT [None]
  - COGWHEEL RIGIDITY [None]
  - ELECTROCARDIOGRAM QT CORRECTED INTERVAL PROLONGED [None]
  - ELECTROCARDIOGRAM QT CORRECTED INTERVAL SHORTENED [None]
  - ELECTROCARDIOGRAM QT PROLONGED [None]
  - ELECTROCARDIOGRAM QT SHORTENED [None]
  - EXTRAPYRAMIDAL DISORDER [None]
  - HALLUCINATION, AUDITORY [None]
  - INTENTIONAL MISUSE [None]
  - MUSCULOSKELETAL STIFFNESS [None]
  - SEDATION [None]
